FAERS Safety Report 8381477 (Version 3)
Quarter: 2015Q2

REPORT INFORMATION
  Report Type: Report from Study
  Country: US (occurrence: US)
  Receive Date: 20120131
  Receipt Date: 20150526
  Transmission Date: 20150821
  Serious: Yes (Death, Hospitalization, Other)
  Sender: FDA-Public Use
  Company Number: US-ASTELLAS-2012US001006

PATIENT
  Sex: Male

DRUGS (1)
  1. ERLOTINIB [Suspect]
     Active Substance: ERLOTINIB
     Indication: LUNG NEOPLASM MALIGNANT
     Dosage: UNK, ONCE DAILY
     Route: 048

REACTIONS (5)
  - Metastases to bone [Unknown]
  - Death [Fatal]
  - Malignant neoplasm progression [Unknown]
  - Pain [Unknown]
  - Hypertension [Unknown]
